FAERS Safety Report 12975578 (Version 1)
Quarter: 2016Q4

REPORT INFORMATION
  Report Type: Spontaneous
  Country: GR (occurrence: GR)
  Receive Date: 20161125
  Receipt Date: 20161125
  Transmission Date: 20170207
  Serious: Yes (Other)
  Sender: FDA-Public Use
  Company Number: GR-GALDERMA-GR16007795

PATIENT
  Age: 65 Year

DRUGS (1)
  1. CLOBEX [Suspect]
     Active Substance: CLOBETASOL PROPIONATE
     Indication: RASH PAPULAR
     Dosage: 0.05%

REACTIONS (2)
  - Intentional product use issue [Recovered/Resolved]
  - Glaucoma [Not Recovered/Not Resolved]
